FAERS Safety Report 15621289 (Version 3)
Quarter: 2018Q4

REPORT INFORMATION
  Report Type: Report from Study
  Country: US (occurrence: US)
  Receive Date: 20181115
  Receipt Date: 20181214
  Transmission Date: 20190205
  Serious: Yes (Death, Hospitalization)
  Sender: FDA-Public Use
  Company Number: US-ROCHE-2214088

PATIENT
  Age: 71 Year
  Sex: Male
  Weight: 95.34 kg

DRUGS (5)
  1. CYCLOPHOSPHAMIDE. [Suspect]
     Active Substance: CYCLOPHOSPHAMIDE
     Indication: RICHTER^S SYNDROME
     Route: 065
  2. RITUXIMAB. [Suspect]
     Active Substance: RITUXIMAB
     Indication: RICHTER^S SYNDROME
     Route: 065
  3. DOXORUBICIN [Suspect]
     Active Substance: DOXORUBICIN
     Indication: RICHTER^S SYNDROME
     Route: 065
  4. PREDNISONE. [Suspect]
     Active Substance: PREDNISONE
     Indication: RICHTER^S SYNDROME
     Route: 065
  5. VINCRISTINE [Suspect]
     Active Substance: VINCRISTINE
     Indication: RICHTER^S SYNDROME
     Route: 065

REACTIONS (17)
  - Shock [Unknown]
  - Sepsis [Fatal]
  - Hypokinesia [Unknown]
  - Systolic dysfunction [Unknown]
  - Hypotension [Unknown]
  - Encephalopathy [Unknown]
  - Thrombocytopenia [Unknown]
  - Hypoxia [Unknown]
  - Neutropenia [Unknown]
  - Anuria [Unknown]
  - Coagulopathy [Unknown]
  - Respiratory failure [Unknown]
  - Acute kidney injury [Unknown]
  - Pancytopenia [Unknown]
  - Hyperbilirubinaemia [Unknown]
  - Hepatic function abnormal [Unknown]
  - Ejection fraction decreased [Unknown]

NARRATIVE: CASE EVENT DATE: 20181106
